FAERS Safety Report 10616253 (Version 1)
Quarter: 2014Q4

REPORT INFORMATION
  Report Type: Spontaneous
  Country: US (occurrence: None)
  Receive Date: 20141125
  Receipt Date: 20141125
  Transmission Date: 20150529
  Serious: No
  Sender: FDA-Public Use
  Company Number: None

PATIENT
  Age: 52 Year
  Sex: Female
  Weight: 131.54 kg

DRUGS (1)
  1. METHYLPHENIDATE ER [Suspect]
     Active Substance: METHYLPHENIDATE
     Indication: ATTENTION DEFICIT/HYPERACTIVITY DISORDER
     Dosage: 1 PER DAY?
     Route: 048
     Dates: start: 20130101, end: 20141101

REACTIONS (5)
  - Poor quality sleep [None]
  - Product substitution issue [None]
  - Disturbance in attention [None]
  - Unable to afford prescribed medication [None]
  - Somnolence [None]
